FAERS Safety Report 6402658-4 (Version None)
Quarter: 2009Q4

REPORT INFORMATION
  Report Type: 
  Country: None (occurrence: None)
  Receive Date: 20091009
  Receipt Date: 20090930
  Transmission Date: 20100525
  Serious: Yes (Disabling)
  Sender: FDA-Public Use
  Company Number: ADR34242009

PATIENT
  Age: 71 Year
  Sex: Male

DRUGS (3)
  1. CIPROFLOXACIN [Suspect]
     Indication: ARTHRITIS BACTERIAL
     Dosage: 1.5 G, ORAL
     Route: 048
     Dates: start: 20050203, end: 20050530
  2. FLUCLOXACILLIN [Concomitant]
  3. ZOPICLONE [Concomitant]

REACTIONS (1)
  - ORAL PAIN [None]
